FAERS Safety Report 20928852 (Version 1)
Quarter: 2022Q2

REPORT INFORMATION
  Report Type: Spontaneous
  Country: US (occurrence: US)
  Receive Date: 20220607
  Receipt Date: 20220607
  Transmission Date: 20220720
  Serious: Yes (Life-Threatening, Hospitalization)
  Sender: FDA-Public Use
  Company Number: US-AVET LIFESCIENCES LTD-2022-AVET-000097

PATIENT
  Age: 60 Year
  Sex: Male

DRUGS (9)
  1. ADENOSINE [Suspect]
     Active Substance: ADENOSINE
     Indication: Nerve conduction studies
     Dosage: 12 MILLIGRAM
     Route: 042
  2. ADENOSINE [Suspect]
     Active Substance: ADENOSINE
     Dosage: UNK
     Route: 042
  3. LOSARTAN POTASSIUM [Concomitant]
     Active Substance: LOSARTAN POTASSIUM
  4. LORATADINE [Concomitant]
     Active Substance: LORATADINE
  5. ATORVASTATIN CALCIUM [Concomitant]
     Active Substance: ATORVASTATIN CALCIUM
  6. FOLIC ACID [Concomitant]
     Active Substance: FOLIC ACID
  7. RIVAROXABAN [Concomitant]
     Active Substance: RIVAROXABAN
  8. Flutica sone propionate [Concomitant]
  9. METOPROLOL SUCCINATE [Concomitant]
     Active Substance: METOPROLOL SUCCINATE

REACTIONS (5)
  - Acute myocardial infarction [Recovered/Resolved]
  - Hypotension [Unknown]
  - Arteriospasm coronary [Recovered/Resolved]
  - Atrioventricular block complete [Recovered/Resolved]
  - Off label use [Unknown]
